FAERS Safety Report 23803697 (Version 1)
Quarter: 2024Q2

REPORT INFORMATION
  Report Type: Spontaneous
  Country: US (occurrence: None)
  Receive Date: 20240430
  Receipt Date: 20240430
  Transmission Date: 20240715
  Serious: Yes (Life-Threatening, Other)
  Sender: FDA-Public Use
  Company Number: None

PATIENT
  Age: 44 Year
  Sex: Female
  Weight: 79.2 kg

DRUGS (2)
  1. SEMAGLUTIDE [Suspect]
     Active Substance: SEMAGLUTIDE
     Indication: Weight decreased
     Dosage: OTHER FREQUENCY : ONCE WEEKLY?
     Route: 058
     Dates: start: 20230702, end: 20230915
  2. PANTOPRAZOLE SODIUM [Concomitant]
     Active Substance: PANTOPRAZOLE SODIUM

REACTIONS (6)
  - Depressed mood [None]
  - Depression [None]
  - Intrusive thoughts [None]
  - Anxiety [None]
  - Therapy cessation [None]
  - Abstains from alcohol [None]

NARRATIVE: CASE EVENT DATE: 20230901
